FAERS Safety Report 12097349 (Version 1)
Quarter: 2016Q1

REPORT INFORMATION
  Report Type: Other
  Country: US (occurrence: US)
  Receive Date: 20160221
  Receipt Date: 20160221
  Transmission Date: 20160526
  Serious: No
  Sender: FDA-Public Use
  Company Number: US-ACORDA-ACO_110811_2015

PATIENT
  Sex: Female

DRUGS (3)
  1. AMPYRA [Suspect]
     Active Substance: DALFAMPRIDINE
     Indication: PRODUCT USED FOR UNKNOWN INDICATION
     Dosage: 10 MG, Q 12 HRS
     Route: 065
     Dates: start: 20100507
  2. BACLOFEN. [Suspect]
     Active Substance: BACLOFEN
     Dosage: 1 DF, QD
     Route: 065
  3. BACLOFEN. [Suspect]
     Active Substance: BACLOFEN
     Indication: HYPOTONIA
     Dosage: 1 DF, TID
     Route: 065

REACTIONS (2)
  - Drug ineffective [Unknown]
  - Muscular weakness [Unknown]
